FAERS Safety Report 10957772 (Version 1)
Quarter: 2015Q1

REPORT INFORMATION
  Report Type: Spontaneous
  Country: US (occurrence: US)
  Receive Date: 20150326
  Receipt Date: 20150326
  Transmission Date: 20150721
  Serious: Yes (Hospitalization, Other)
  Sender: FDA-Public Use
  Company Number: US-AMGEN-USASP2015027350

PATIENT
  Age: 57 Year
  Sex: Female

DRUGS (1)
  1. ENBREL [Suspect]
     Active Substance: ETANERCEPT
     Indication: PSORIATIC ARTHROPATHY
     Dosage: UNK UNK, QWK
     Route: 065
     Dates: start: 20130908, end: 201401

REACTIONS (10)
  - Fall [Recovered/Resolved]
  - Skin graft [Recovered/Resolved]
  - Joint swelling [Not Recovered/Not Resolved]
  - Diabetes mellitus [Recovered/Resolved]
  - Joint fluid drainage [Not Recovered/Not Resolved]
  - Joint warmth [Not Recovered/Not Resolved]
  - Arthropathy [Not Recovered/Not Resolved]
  - Syncope [Recovered/Resolved]
  - Ankle fracture [Recovered/Resolved]
  - Abasia [Not Recovered/Not Resolved]

NARRATIVE: CASE EVENT DATE: 201408
